FAERS Safety Report 16570257 (Version 4)
Quarter: 2019Q4

REPORT INFORMATION
  Report Type: Report from Study
  Country: BR (occurrence: BR)
  Receive Date: 20190715
  Receipt Date: 20191023
  Transmission Date: 20200122
  Serious: Yes (Death, Other)
  Sender: FDA-Public Use
  Company Number: BR-VIIV HEALTHCARE LIMITED-BR2019AMR124545

PATIENT
  Age: 52 Year
  Sex: Male
  Weight: 38 kg

DRUGS (5)
  1. MARAVIROC [Suspect]
     Active Substance: MARAVIROC
     Indication: HIV INFECTION
     Dosage: UNK
     Dates: start: 20090915, end: 201807
  2. TENOFOVIR ALAFENMIDE FUMARATE [Suspect]
     Active Substance: TENOFOVIR ALAFENAMIDE FUMARATE
  3. RITONAVIR. [Concomitant]
     Active Substance: RITONAVIR
  4. ATAZANAVIR. [Concomitant]
     Active Substance: ATAZANAVIR
  5. LAMIVUDINE. [Suspect]
     Active Substance: LAMIVUDINE

REACTIONS (5)
  - Dyspnoea [Fatal]
  - Coronary artery insufficiency [Fatal]
  - Acquired immunodeficiency syndrome [Fatal]
  - Malignant melanoma [Fatal]
  - Cardio-respiratory arrest [Fatal]
